FAERS Safety Report 23313948 (Version 1)
Quarter: 2023Q4

REPORT INFORMATION
  Report Type: Spontaneous
  Country: JP (occurrence: JP)
  Receive Date: 20231219
  Receipt Date: 20231219
  Transmission Date: 20240110
  Serious: Yes (Other)
  Sender: FDA-Public Use
  Company Number: JP-PFIZER INC-PV202300202189

PATIENT
  Age: 15 Year

DRUGS (1)
  1. VIBRAMYCIN [Suspect]
     Active Substance: DOXYCYCLINE
     Dosage: UNK
     Route: 048

REACTIONS (3)
  - Oesophageal ulcer [Unknown]
  - Erosive oesophagitis [Unknown]
  - Oesophageal ulcer haemorrhage [Unknown]
